FAERS Safety Report 7345013-5 (Version None)
Quarter: 2011Q1

REPORT INFORMATION
  Report Type: 
  Country: None (occurrence: None)
  Receive Date: 20110302
  Receipt Date: 20110218
  Transmission Date: 20110831
  Serious: Yes (Life-Threatening, Hospitalization)
  Sender: FDA-Public Use
  Company Number: JHP201100043

PATIENT
  Age: 73 Year
  Sex: Male

DRUGS (9)
  1. DANTRIUM [Suspect]
     Indication: MUSCLE SPASTICITY
     Dosage: 25 MG, DAILY, ORAL
     Route: 048
     Dates: start: 20030101
  2. ANTIBIOTICS [Concomitant]
  3. FOLIC ACID [Concomitant]
  4. HYDROCHLOROTHIAZIDE [Concomitant]
  5. VIVEO [Concomitant]
  6. BERODUAL (FENOTEROL HYDROBROMIDE, IPRATROPIUM BROMIDE) [Concomitant]
  7. CYTOBION (CYANOCOBALAMIN) [Concomitant]
  8. BACLOFEN [Concomitant]
  9. ASPIRIN [Concomitant]

REACTIONS (8)
  - PANCYTOPENIA [None]
  - URINARY TRACT INFECTION [None]
  - BLOOD FOLATE DECREASED [None]
  - GASTROINTESTINAL HAEMORRHAGE [None]
  - VITAMIN B12 DECREASED [None]
  - HAEMATURIA [None]
  - BONE MARROW TOXICITY [None]
  - WEIGHT DECREASED [None]
